FAERS Safety Report 24272910 (Version 1)
Quarter: 2024Q3

REPORT INFORMATION
  Report Type: Spontaneous
  Country: US (occurrence: US)
  Receive Date: 20240902
  Receipt Date: 20240902
  Transmission Date: 20241017
  Serious: No
  Sender: ROCHE
  Company Number: US-ROCHE-10000071371

PATIENT
  Age: 53 Year
  Sex: Male
  Weight: 109.0 kg

DRUGS (5)
  1. OCREVUS [Suspect]
     Active Substance: OCRELIZUMAB
     Indication: Multiple sclerosis
     Dosage: 600 MG EVERY 26 WEEKS
     Route: 042
     Dates: start: 20240229
  2. ZETIA [Concomitant]
     Active Substance: EZETIMIBE
     Dosage: 10 MG A DAY
     Route: 048
     Dates: start: 20230724
  3. COREG [Concomitant]
     Active Substance: CARVEDILOL
     Dosage: 24 MG TWICE A DAY
     Route: 048
     Dates: start: 20230724
  4. CLONIDINE [Concomitant]
     Active Substance: CLONIDINE
     Dosage: .1 MG EVERY 8 HOURS
     Route: 048
  5. LANTUS [Concomitant]
     Active Substance: INSULIN GLARGINE
     Dosage: 20 UNITS EVERY MORNING
     Route: 058
     Dates: start: 20230707

REACTIONS (1)
  - Hypertension [Unknown]

NARRATIVE: CASE EVENT DATE: 20240829
